FAERS Safety Report 12605465 (Version 1)
Quarter: 2016Q3

REPORT INFORMATION
  Report Type: Spontaneous
  Country: FR (occurrence: FR)
  Receive Date: 20160729
  Receipt Date: 20160729
  Transmission Date: 20161109
  Serious: Yes (Hospitalization, Other)
  Sender: FDA-Public Use
  Company Number: FR-009507513-1607FRA010472

PATIENT
  Age: 71 Year
  Sex: Male
  Weight: 83 kg

DRUGS (8)
  1. CELESTENE [Suspect]
     Active Substance: BETAMETHASONE
     Dosage: 0.5 TABLET DAILY
  2. CELESTENE [Suspect]
     Active Substance: BETAMETHASONE
     Dosage: 0.5 TABLET DAILY CONTINUOUSLY
  3. CELESTENE [Suspect]
     Active Substance: BETAMETHASONE
     Dosage: 2 TABLETS THE FIRST DAY OF CRISIS
     Route: 048
  4. CELESTENE [Suspect]
     Active Substance: BETAMETHASONE
     Dosage: 1 TABLET DAILY
     Route: 048
  5. CELESTENE [Suspect]
     Active Substance: BETAMETHASONE
     Indication: POLYARTHRITIS
     Dosage: 2 TABLETS DAILY DURING 5 DAYS
     Route: 048
     Dates: start: 201504, end: 2015
  6. CELESTENE [Suspect]
     Active Substance: BETAMETHASONE
     Dosage: 8 TO 9 DAYS AFTER LAST  TREATMENT, 1 TABLET THE FIRST DAY OF THE CRISIS
  7. CELESTENE [Suspect]
     Active Substance: BETAMETHASONE
     Dosage: 8 TO 9 DAYS AFTER LAST 5 DAYS TREATMENT, TREATMENT DURING 5 DAYS AT 2 TABLETS DAILY
     Route: 048
     Dates: start: 2015, end: 2015
  8. SYMBICORT [Concomitant]
     Active Substance: BUDESONIDE\FORMOTEROL FUMARATE DIHYDRATE
     Indication: BRONCHIAL DISORDER
     Dosage: STRENGTH 400(UNIT UNKNOWN)
     Dates: start: 2001

REACTIONS (3)
  - Intentional product misuse [Unknown]
  - Spinal compression fracture [Unknown]
  - Lumbar vertebral fracture [Unknown]

NARRATIVE: CASE EVENT DATE: 201506
